FAERS Safety Report 5413701-3 (Version None)
Quarter: 2007Q3

REPORT INFORMATION
  Report Type: 
  Country: None (occurrence: None)
  Receive Date: 20070814
  Receipt Date: 20070814
  Transmission Date: 20080115
  Serious: Yes (Other)
  Sender: FDA-Public Use
  Company Number: A0669725A

PATIENT
  Age: 89 Year
  Sex: Male

DRUGS (1)
  1. FEOSOL IRON THERAPY TABLETS [Suspect]
     Route: 048

REACTIONS (1)
  - MELAENA [None]
